FAERS Safety Report 5639895-2 (Version None)
Quarter: 2008Q1

REPORT INFORMATION
  Report Type: 
  Country: None (occurrence: None)
  Receive Date: 20080225
  Receipt Date: 20080212
  Transmission Date: 20080703
  Serious: Yes (Hospitalization)
  Sender: FDA-Public Use
  Company Number: B0508980A

PATIENT
  Age: 70 Year
  Sex: Male

DRUGS (15)
  1. CEFTIN [Suspect]
     Indication: PHARYNGITIS
     Dosage: ORAL
     Route: 048
     Dates: start: 20071228, end: 20080102
  2. LAMIVUDINE [Concomitant]
  3. POLERY [Concomitant]
  4. CYCLOSPORINE [Concomitant]
  5. MYCOPHENOLATE MOFETIL [Concomitant]
  6. PRAVASTATIN SODIUM [Concomitant]
  7. ACEBUTOLOL HYDROCHLORIDE [Concomitant]
  8. RENITEC [Concomitant]
  9. CLOPIDOGREL BISULFATE [Concomitant]
  10. NICARDIPINE HYDROCHLORIDE [Concomitant]
  11. RISEDRONIC ACID [Concomitant]
  12. CALCIUM CARBONATE [Concomitant]
  13. ESOMEPRAZOLE MAGNESIUM [Concomitant]
  14. CICLOPIROX [Concomitant]
  15. HEPATITIS B IMMUNOGLOBUL [Concomitant]

REACTIONS (1)
  - HEPATITIS [None]
